FAERS Safety Report 9731217 (Version 1)
Quarter: 2013Q4

REPORT INFORMATION
  Report Type: Spontaneous
  Country: IN (occurrence: IN)
  Receive Date: 20131205
  Receipt Date: 20131205
  Transmission Date: 20140711
  Serious: Yes (Other)
  Sender: FDA-Public Use
  Company Number: IN-ALVOGEN-2013AL002795

PATIENT
  Age: 43 Year
  Sex: Male

DRUGS (2)
  1. DISULFIRAM [Suspect]
     Indication: ALCOHOLISM
  2. DISULFIRAM [Suspect]
     Indication: ALCOHOLISM

REACTIONS (2)
  - Optic ischaemic neuropathy [Recovered/Resolved with Sequelae]
  - Neuropathy peripheral [Recovered/Resolved]
